FAERS Safety Report 8342758-5 (Version None)
Quarter: 2012Q2

REPORT INFORMATION
  Report Type: 
  Country: None (occurrence: None)
  Receive Date: 20120503
  Receipt Date: 20120410
  Transmission Date: 20120825
  Serious: Yes (Hospitalization, Other)
  Sender: FDA-Public Use
  Company Number: ES-024945

PATIENT
  Age: 71 Year
  Sex: Male
  Weight: 76 kg

DRUGS (6)
  1. ISOSORBIDE MONONITRATE [Concomitant]
  2. SIMVASTATIN [Concomitant]
  3. RITUXIMAB (RITUXIMAB) (INJECTION) [Suspect]
     Indication: CHRONIC LYMPHOCYTIC LEUKAEMIA
     Dosage: 933MG PER DAY
     Route: 042
     Dates: start: 20110518
  4. ASPIRIN [Concomitant]
  5. OMEPRAZOLE [Concomitant]
  6. CHLORAMBUCIL (CHLORAMBUCIL) [Suspect]
     Indication: CHRONIC LYMPHOCYTIC LEUKAEMIA
     Dosage: 126MG PER DAY
     Route: 048
     Dates: start: 20110518

REACTIONS (6)
  - STAPHYLOCOCCAL INFECTION [None]
  - VOMITING [None]
  - FEBRILE NEUTROPENIA [None]
  - URINARY TRACT INFECTION [None]
  - MALAISE [None]
  - NAUSEA [None]
